FAERS Safety Report 22147620 (Version 4)
Quarter: 2023Q4

REPORT INFORMATION
  Report Type: Report from Study
  Country: CA (occurrence: CA)
  Receive Date: 20230328
  Receipt Date: 20231020
  Transmission Date: 20240109
  Serious: Yes (Other)
  Sender: FDA-Public Use
  Company Number: CA-JNJFOC-20230364911

PATIENT
  Age: 28 Year
  Sex: Female
  Weight: 98 kg

DRUGS (1)
  1. REMICADE [Suspect]
     Active Substance: INFLIXIMAB
     Indication: Crohn^s disease
     Dosage: WANTS TO BE PUT ON HOLD UNTIL SHE HAS SURGERY DATE?START DATE: 11-DEC-2019
     Route: 042
     Dates: start: 20150113

REACTIONS (3)
  - HER2 positive breast cancer [Unknown]
  - Metastases to lymph nodes [Unknown]
  - Off label use [Unknown]

NARRATIVE: CASE EVENT DATE: 20150113
